FAERS Safety Report 17177501 (Version 1)
Quarter: 2019Q4

REPORT INFORMATION
  Report Type: Spontaneous
  Country: US (occurrence: US)
  Receive Date: 20191219
  Receipt Date: 20191219
  Transmission Date: 20200122
  Serious: No
  Sender: FDA-Public Use
  Company Number: US-COOPERSURGICAL, INC.-US-2019CPS000069

PATIENT

DRUGS (2)
  1. IMMUNE HEALTH [Concomitant]
     Indication: VITAMIN SUPPLEMENTATION
     Dosage: UNK
  2. PARAGARD T 380A [Suspect]
     Active Substance: COPPER
     Indication: CONTRACEPTION
     Dosage: UNK
     Route: 015
     Dates: start: 20170103, end: 20181129

REACTIONS (6)
  - Vaginal discharge [Recovered/Resolved]
  - Vulvovaginal pruritus [Recovered/Resolved]
  - Fungal infection [Recovered/Resolved]
  - Papilloma viral infection [Not Recovered/Not Resolved]
  - Device related infection [Recovered/Resolved]
  - Bacterial vaginosis [Recovered/Resolved]

NARRATIVE: CASE EVENT DATE: 201703
